FAERS Safety Report 18167399 (Version 1)
Quarter: 2020Q3

REPORT INFORMATION
  Report Type: Spontaneous
  Country: US (occurrence: US)
  Receive Date: 20200818
  Receipt Date: 20200818
  Transmission Date: 20201103
  Serious: Yes (Death)
  Sender: FDA-Public Use
  Company Number: None

PATIENT
  Age: 70 Year
  Sex: Female
  Weight: 113.1 kg

DRUGS (20)
  1. ATORVASTATIN [Concomitant]
     Active Substance: ATORVASTATIN
     Dates: start: 20200802, end: 20200812
  2. DEXAMETHASONE. [Concomitant]
     Active Substance: DEXAMETHASONE
     Dates: start: 20200806, end: 20200813
  3. ENOXAPARIN [Concomitant]
     Active Substance: ENOXAPARIN
     Dates: start: 20200806, end: 20200813
  4. MUPIROCIN TOPICAL [Concomitant]
     Dates: start: 20200811, end: 20200816
  5. CEFEPIME [Concomitant]
     Active Substance: CEFEPIME HYDROCHLORIDE
     Dates: start: 20200811, end: 20200813
  6. NYSTATIN TOPICAL [Concomitant]
     Dates: start: 20200806, end: 20200812
  7. IPRATROPIUM [Concomitant]
     Active Substance: IPRATROPIUM
     Dates: start: 20200803, end: 20200813
  8. FAMOTIDINE. [Concomitant]
     Active Substance: FAMOTIDINE
     Dates: start: 20200804, end: 20200812
  9. MICONAZOLE TOPICAL [Concomitant]
     Dates: start: 20200806, end: 20200812
  10. VANCOMYCIN [Concomitant]
     Active Substance: VANCOMYCIN
     Dates: start: 20200811, end: 20200811
  11. REMDESIVIR. [Suspect]
     Active Substance: REMDESIVIR
     Indication: COVID-19
     Route: 041
     Dates: start: 20200808, end: 20200811
  12. ASPIRIN. [Concomitant]
     Active Substance: ASPIRIN
     Dates: start: 20200803, end: 20200812
  13. INSULIN GLARGINE [Concomitant]
     Active Substance: INSULIN GLARGINE
     Dates: start: 20200806, end: 20200811
  14. NIFEDIPINE. [Concomitant]
     Active Substance: NIFEDIPINE
     Dates: start: 20200803, end: 20200811
  15. AZITHROMYCIN ANHYDROUS. [Concomitant]
     Active Substance: AZITHROMYCIN ANHYDROUS
     Dates: start: 20200803, end: 20200807
  16. TICAGRELOR. [Concomitant]
     Active Substance: TICAGRELOR
     Dates: start: 20200802, end: 20200812
  17. REMDESIVIR. [Suspect]
     Active Substance: REMDESIVIR
     Indication: COVID-19
     Dosage: ?          OTHER FREQUENCY:ONCE;?
     Route: 041
     Dates: start: 20200807, end: 20200807
  18. ASCORBIC ACID. [Concomitant]
     Active Substance: ASCORBIC ACID
     Dates: start: 20200804, end: 20200812
  19. INSULIN LISPRO [Concomitant]
     Active Substance: INSULIN LISPRO
     Dates: start: 20200803, end: 20200816
  20. ZINC SULFATE. [Concomitant]
     Active Substance: ZINC SULFATE
     Dates: start: 20200804, end: 20200812

REACTIONS (1)
  - Death [None]

NARRATIVE: CASE EVENT DATE: 20200816
